FAERS Safety Report 8491201-4 (Version None)
Quarter: 2012Q3

REPORT INFORMATION
  Report Type: 
  Country: None (occurrence: None)
  Receive Date: 20120706
  Receipt Date: 20120629
  Transmission Date: 20120928
  Serious: Yes (Hospitalization, Other)
  Sender: FDA-Public Use
  Company Number: DE-ABBOTT-11P-062-0853611-00

PATIENT
  Sex: Female
  Weight: 45 kg

DRUGS (4)
  1. BUDESONIDE [Concomitant]
     Indication: CROHN'S DISEASE
  2. METOCLOPRAMIDE [Concomitant]
     Indication: CROHN'S DISEASE
     Route: 048
  3. PANTOPRAZOLE [Concomitant]
     Indication: PRODUCT USED FOR UNKNOWN INDICATION
     Dosage: 40 MG DAILY
     Dates: start: 20110821, end: 20110901
  4. HUMIRA [Suspect]
     Indication: CROHN'S DISEASE
     Route: 058
     Dates: start: 20081118

REACTIONS (4)
  - CROHN'S DISEASE [None]
  - SUBILEUS [None]
  - ANASTOMOTIC STENOSIS [None]
  - INTESTINAL STENOSIS [None]
